FAERS Safety Report 6942895-3 (Version None)
Quarter: 2010Q3

REPORT INFORMATION
  Report Type: 
  Country: None (occurrence: None)
  Receive Date: 20100826
  Receipt Date: 20100811
  Transmission Date: 20110219
  Serious: Yes (Other)
  Sender: FDA-Public Use
  Company Number: CA-GENENTECH-305461

PATIENT
  Sex: Female

DRUGS (1)
  1. XOLAIR [Suspect]
     Indication: ASTHMA
     Dosage: 375 UNK, UNK
     Route: 058
     Dates: start: 20050722

REACTIONS (3)
  - CHEST DISCOMFORT [None]
  - COUGH [None]
  - DIABETES MELLITUS [None]
